FAERS Safety Report 7916076-0 (Version None)
Quarter: 2011Q4

REPORT INFORMATION
  Report Type: 
  Country: None (occurrence: None)
  Receive Date: 20111115
  Receipt Date: 20111101
  Transmission Date: 20120403
  Serious: Yes (Hospitalization)
  Sender: FDA-Public Use
  Company Number: JP-ELI_LILLY_AND_COMPANY-JP201110006341

PATIENT
  Age: 65 Year
  Sex: Female

DRUGS (2)
  1. TERIPARATIDE [Suspect]
     Dosage: UNK
     Route: 058
     Dates: start: 20110401, end: 20111026
  2. SYMMETREL [Concomitant]
     Dosage: UNK
     Route: 048

REACTIONS (2)
  - FALL [None]
  - LOWER LIMB FRACTURE [None]
